FAERS Safety Report 15956413 (Version 1)
Quarter: 2019Q1

REPORT INFORMATION
  Report Type: Spontaneous
  Country: US (occurrence: US)
  Receive Date: 20190213
  Receipt Date: 20190213
  Transmission Date: 20190417
  Serious: Yes (Disabling)
  Sender: FDA-Public Use
  Company Number: None

PATIENT
  Sex: Female
  Weight: 118.39 kg

DRUGS (1)
  1. MIRENA [Suspect]
     Active Substance: LEVONORGESTREL

REACTIONS (6)
  - Complication associated with device [None]
  - Fungal infection [None]
  - Insulin resistance [None]
  - Vulvovaginal dryness [None]
  - Weight increased [None]
  - Diabetes mellitus inadequate control [None]
